FAERS Safety Report 14052904 (Version 2)
Quarter: 2017Q4

REPORT INFORMATION
  Report Type: Spontaneous
  Country: US (occurrence: US)
  Receive Date: 20171006
  Receipt Date: 20171128
  Transmission Date: 20180321
  Serious: No
  Sender: FDA-Public Use
  Company Number: US-JNJFOC-20170925119

PATIENT
  Age: 35 Year
  Sex: Male
  Weight: 68.04 kg

DRUGS (10)
  1. LYSINE [Concomitant]
     Active Substance: LYSINE
     Indication: ROUTINE HEALTH MAINTENANCE
     Route: 065
  2. ZYRTEC [Suspect]
     Active Substance: CETIRIZINE HYDROCHLORIDE
     Indication: RHINORRHOEA
     Dosage: 1 TABLET ONCE
     Route: 048
     Dates: start: 20170922, end: 20170922
  3. ZYRTEC [Suspect]
     Active Substance: CETIRIZINE HYDROCHLORIDE
     Indication: LACRIMATION INCREASED
     Dosage: 1 TABLET ONCE
     Route: 048
     Dates: start: 20170922, end: 20170922
  4. ZYRTEC [Suspect]
     Active Substance: CETIRIZINE HYDROCHLORIDE
     Indication: SNEEZING
     Dosage: 1 TABLET ONCE
     Route: 048
     Dates: start: 20170922, end: 20170922
  5. VITAMIN B [Concomitant]
     Active Substance: VITAMIN B
     Indication: ROUTINE HEALTH MAINTENANCE
     Route: 065
  6. VITAMIN D3 [Concomitant]
     Active Substance: CHOLECALCIFEROL
     Indication: ROUTINE HEALTH MAINTENANCE
     Route: 065
  7. CREATINE [Concomitant]
     Active Substance: CREATINE
     Indication: ROUTINE HEALTH MAINTENANCE
     Route: 065
  8. L GLUTAMINE [Concomitant]
     Active Substance: GLUTAMINE
     Indication: ROUTINE HEALTH MAINTENANCE
     Route: 065
  9. ZYRTEC [Suspect]
     Active Substance: CETIRIZINE HYDROCHLORIDE
     Indication: SEASONAL ALLERGY
     Dosage: 1 TABLET ONCE
     Route: 048
     Dates: start: 20170922, end: 20170922
  10. TURMERIC [Concomitant]
     Active Substance: HERBALS\TURMERIC
     Indication: ROUTINE HEALTH MAINTENANCE
     Route: 065

REACTIONS (1)
  - Drug ineffective [Unknown]
